FAERS Safety Report 8913073 (Version 1)
Quarter: 2012Q4

REPORT INFORMATION
  Report Type: Spontaneous
  Country: IT (occurrence: None)
  Receive Date: 20121113
  Receipt Date: 20121113
  Transmission Date: 20130627
  Serious: Yes (Other)
  Sender: FDA-Public Use
  Company Number: 2012AP003651

PATIENT
  Age: 82 Year
  Sex: Female

DRUGS (15)
  1. LEVOFLOXACIN [Suspect]
     Indication: HYPERPYREXIA
     Dosage: 500 mg, qd, po
     Route: 048
     Dates: start: 20120801, end: 20120810
  2. CEFTRIAXONE (CEFTRIAXONE) [Suspect]
     Indication: HYPERPYREXIA
     Route: 030
     Dates: start: 20120811, end: 20120823
  3. MICARDISPLUS (PRITORPLUS) [Concomitant]
  4. CARDIOASPIRIN (ACETYLSALICYLIC ACID) [Concomitant]
  5. KEPPRA (LEVETIRACETAM) [Concomitant]
  6. SPIRIVA (TIOTROPIUM BROMIDE) [Concomitant]
  7. SERETIDE (SERETIDE) [Concomitant]
  8. CATAPRESSAN /00171101/ (CLONIDINE) [Concomitant]
  9. TOTALIP (ATORVASTATIN CALCIUM) [Concomitant]
  10. ZYLORIC (ALLOPURINOL) [Concomitant]
  11. ZANEDIP (LERCANIDIPINE HYDROCHLORIDE) [Concomitant]
  12. LASIX /00032601/ (FUROSEMIDE) [Concomitant]
  13. FERROGRAD /00023506/ (FERROUS SULFATE EXSICCATED) [Concomitant]
  14. ENALAPRIL (ENALAPRIL) [Concomitant]
  15. OMEPRAZOLE (OMEPRAZOLE) [Concomitant]

REACTIONS (2)
  - Acute generalised exanthematous pustulosis [None]
  - Pulmonary fibrosis [None]
